FAERS Safety Report 6230728-2 (Version None)
Quarter: 2009Q2

REPORT INFORMATION
  Report Type: 
  Country: None (occurrence: None)
  Receive Date: 20090612
  Receipt Date: 20090612
  Transmission Date: 20091009
  Serious: Yes (Disabling)
  Sender: FDA-Public Use
  Company Number: None

PATIENT
  Age: 62 Year
  Sex: Female
  Weight: 99.7913 kg

DRUGS (4)
  1. AZITHROMYCIN [Suspect]
     Indication: EYE INFECTION
     Dosage: 2 - 1ST DAY - 1-4 DAYS; 2 PILLS
     Dates: start: 20090527, end: 20090531
  2. AZITHROMYCIN [Suspect]
     Indication: NASOPHARYNGITIS
     Dosage: 2 - 1ST DAY - 1-4 DAYS; 2 PILLS
     Dates: start: 20090527, end: 20090531
  3. AZITHROMYCIN [Suspect]
     Indication: EYE INFECTION
     Dosage: 2 - 1ST DAY - 1-4 DAYS; 2 PILLS
     Dates: start: 20090602
  4. AZITHROMYCIN [Suspect]
     Indication: NASOPHARYNGITIS
     Dosage: 2 - 1ST DAY - 1-4 DAYS; 2 PILLS
     Dates: start: 20090602

REACTIONS (3)
  - DEAFNESS [None]
  - DYSPHONIA [None]
  - TINNITUS [None]
